FAERS Safety Report 20657208 (Version 1)
Quarter: 2022Q1

REPORT INFORMATION
  Report Type: Spontaneous
  Country: None (occurrence: ES)
  Receive Date: 20220331
  Receipt Date: 20220331
  Transmission Date: 20220423
  Serious: Yes (Death)
  Sender: FDA-Public Use
  Company Number: ES-MLMSERVICE-20220314-3425467-1

PATIENT
  Age: 94 Year
  Sex: Male

DRUGS (2)
  1. LEUPROLIDE ACETATE [Suspect]
     Active Substance: LEUPROLIDE ACETATE
     Indication: Retroperitoneal lymphadenopathy
     Route: 065
     Dates: start: 202007, end: 2020
  2. BICALUTAMIDE [Suspect]
     Active Substance: BICALUTAMIDE
     Dates: start: 202007, end: 202007

REACTIONS (3)
  - Respiratory failure [Recovered/Resolved]
  - Pneumonitis chemical [Recovered/Resolved]
  - Interstitial lung disease [Recovered/Resolved]

NARRATIVE: CASE EVENT DATE: 20201001
